FAERS Safety Report 5903508-2 (Version None)
Quarter: 2008Q3

REPORT INFORMATION
  Report Type: 
  Country: None (occurrence: None)
  Receive Date: 20080930
  Receipt Date: 20080919
  Transmission Date: 20090109
  Serious: Yes (Other)
  Sender: FDA-Public Use
  Company Number: US-JNJFOC-20080905339

PATIENT

DRUGS (4)
  1. IBUPROFEN [Suspect]
     Indication: INFLAMMATION
     Dosage: 600-800MG, 3 TIMES DAILY
  2. EXTRA STRENGTH TYLENOL [Interacting]
  3. EXTRA STRENGTH TYLENOL [Interacting]
     Indication: PAIN
  4. VICODIN [Interacting]
     Indication: PAIN

REACTIONS (3)
  - CONVULSION [None]
  - DRUG INTERACTION [None]
  - SYNCOPE [None]
